FAERS Safety Report 15567806 (Version 2)
Quarter: 2019Q1

REPORT INFORMATION
  Report Type: Report from Study
  Country: US (occurrence: US)
  Receive Date: 20181030
  Receipt Date: 20190220
  Transmission Date: 20190417
  Serious: Yes (Other)
  Sender: FDA-Public Use
  Company Number: PHHY2018US137929

PATIENT
  Age: 48 Year
  Sex: Female

DRUGS (1)
  1. GILENYA [Suspect]
     Active Substance: FINGOLIMOD HYDROCHLORIDE
     Indication: MULTIPLE SCLEROSIS
     Dosage: UNK UNK, QD
     Route: 048

REACTIONS (6)
  - Leukopenia [Unknown]
  - Fatigue [Unknown]
  - Gait disturbance [Unknown]
  - Pain in extremity [Unknown]
  - Lymphocyte count decreased [Unknown]
  - High density lipoprotein increased [Unknown]

NARRATIVE: CASE EVENT DATE: 20151116
